FAERS Safety Report 4834484-1 (Version None)
Quarter: 2005Q4

REPORT INFORMATION
  Report Type: 
  Country: None (occurrence: None)
  Receive Date: 20051122
  Receipt Date: 20041221
  Transmission Date: 20060501
  Serious: No
  Sender: FDA-Public Use
  Company Number: US-BRISTOL-MYERS SQUIBB COMPANY-12802286

PATIENT
  Age: 57 Year
  Sex: Male
  Weight: 86 kg

DRUGS (3)
  1. PRAVACHOL [Suspect]
     Indication: BLOOD CHOLESTEROL INCREASED
     Route: 048
     Dates: end: 20041208
  2. REMINYL [Concomitant]
  3. NAMENDA [Concomitant]

REACTIONS (3)
  - ENZYME ABNORMALITY [None]
  - MUSCULAR WEAKNESS [None]
  - MYALGIA [None]
